FAERS Safety Report 12980289 (Version 2)
Quarter: 2017Q1

REPORT INFORMATION
  Report Type: Spontaneous
  Country: US (occurrence: US)
  Receive Date: 20161128
  Receipt Date: 20170328
  Transmission Date: 20170428
  Serious: No
  Sender: FDA-Public Use
  Company Number: US-ELI_LILLY_AND_COMPANY-US201607007553

PATIENT
  Sex: Female

DRUGS (1)
  1. CYMBALTA [Suspect]
     Active Substance: DULOXETINE HYDROCHLORIDE
     Indication: NEUROPATHY PERIPHERAL
     Dosage: 60 MG, QD
     Route: 065
     Dates: start: 20141001

REACTIONS (7)
  - Insomnia [Unknown]
  - Dizziness [Unknown]
  - Nightmare [Unknown]
  - Drug withdrawal syndrome [Unknown]
  - Dysphoria [Unknown]
  - Fatigue [Unknown]
  - Hyperhidrosis [Unknown]
